FAERS Safety Report 7359756-0 (Version None)
Quarter: 2011Q1

REPORT INFORMATION
  Report Type: 
  Country: None (occurrence: None)
  Receive Date: 20110307
  Receipt Date: 20110218
  Transmission Date: 20110831
  Serious: Yes (Other)
  Sender: FDA-Public Use
  Company Number: AUR-APL-2011-00618

PATIENT
  Age: 38 Year
  Sex: Male

DRUGS (2)
  1. SUMATRIPTAN [Suspect]
  2. LUSTRAL [Suspect]
     Dosage: 300MG

REACTIONS (2)
  - APPENDICITIS [None]
  - DRUG INTERACTION [None]
